FAERS Safety Report 6677310-0 (Version None)
Quarter: 2010Q2

REPORT INFORMATION
  Report Type: 
  Country: None (occurrence: None)
  Receive Date: 20100412
  Receipt Date: 20100331
  Transmission Date: 20101027
  Serious: Yes (Hospitalization)
  Sender: FDA-Public Use
  Company Number: SA-WATSON-2010-04528

PATIENT
  Age: 26 Year
  Sex: Female

DRUGS (1)
  1. PREDNISOLONE [Suspect]
     Indication: ASTHMA
     Dosage: 10 MG, DAILY
     Route: 048

REACTIONS (5)
  - ADRENAL INSUFFICIENCY [None]
  - HYPERPARATHYROIDISM SECONDARY [None]
  - HYPERTHYROIDISM [None]
  - MULTIPLE FRACTURES [None]
  - OSTEOPOROSIS [None]
